FAERS Safety Report 8583101-6 (Version None)
Quarter: 2012Q3

REPORT INFORMATION
  Report Type: 
  Country: None (occurrence: None)
  Receive Date: 20120809
  Receipt Date: 20120801
  Transmission Date: 20120928
  Serious: Yes (Other)
  Sender: FDA-Public Use
  Company Number: US-B.I. PHARMACEUTICALS,INC./RIDGEFIELD-2011-BP-13101BP

PATIENT
  Sex: Male

DRUGS (9)
  1. PRADAXA [Suspect]
     Indication: ATRIAL FIBRILLATION
     Dosage: 300 MG
     Route: 048
     Dates: start: 20110318, end: 20110510
  2. PRADAXA [Suspect]
     Dosage: 300 MG
     Route: 048
     Dates: start: 20111006
  3. METOPROLOL TARTRATE [Suspect]
  4. TYLENOL [Concomitant]
     Route: 048
  5. CARDIZEM [Suspect]
  6. LOSARTAN POTASSIUM [Concomitant]
     Indication: HYPERTENSION
  7. ASPIRIN [Concomitant]
     Indication: ATRIAL FIBRILLATION
     Dosage: 325 MG
     Route: 048
     Dates: start: 20110511
  8. FISH OIL [Concomitant]
     Dosage: 1000 MG
  9. LOSARTAN POTASSIUM [Concomitant]
     Indication: ATRIAL FIBRILLATION
     Dosage: 25 MG
     Route: 048
     Dates: start: 20110301

REACTIONS (11)
  - DEPRESSED MOOD [None]
  - ABDOMINAL DISTENSION [None]
  - BASAL CELL CARCINOMA [None]
  - BLOOD TESTOSTERONE DECREASED [None]
  - MOOD SWINGS [None]
  - DIZZINESS [None]
  - FEELING ABNORMAL [None]
  - FAT TISSUE INCREASED [None]
  - DIARRHOEA [None]
  - HEADACHE [None]
  - WEIGHT INCREASED [None]
